FAERS Safety Report 20157558 (Version 1)
Quarter: 2021Q4

REPORT INFORMATION
  Report Type: Spontaneous
  Country: US (occurrence: US)
  Receive Date: 20211207
  Receipt Date: 20211207
  Transmission Date: 20220304
  Serious: Yes (Other)
  Sender: FDA-Public Use
  Company Number: US-SLATE RUN PHARMACEUTICALS-21US000824

PATIENT

DRUGS (2)
  1. VANCOMYCIN HYDROCHLORIDE [Suspect]
     Active Substance: VANCOMYCIN HYDROCHLORIDE
     Indication: Pneumonia
     Dosage: UNK
  2. PIPERACILLIN AND TAZOBACTAM [Concomitant]
     Active Substance: PIPERACILLIN SODIUM\TAZOBACTAM SODIUM
     Indication: Pneumonia

REACTIONS (7)
  - Pancreatitis acute [Recovering/Resolving]
  - Treatment failure [Unknown]
  - Atrial fibrillation [Recovering/Resolving]
  - Leukocytosis [Recovered/Resolved]
  - Lactic acidosis [Recovered/Resolved]
  - Mental disorder [Recovering/Resolving]
  - Hypotension [Recovering/Resolving]
